FAERS Safety Report 24940098 (Version 1)
Quarter: 2025Q1

REPORT INFORMATION
  Report Type: Report from Study
  Country: US (occurrence: US)
  Receive Date: 20250207
  Receipt Date: 20250207
  Transmission Date: 20250409
  Serious: Yes (Hospitalization, Other)
  Sender: ROCHE
  Company Number: US-ROCHE-10000192056

PATIENT
  Age: 34 Year
  Sex: Female

DRUGS (3)
  1. XOLAIR [Suspect]
     Active Substance: OMALIZUMAB
     Indication: Chronic spontaneous urticaria
     Dosage: INJECT 2 SYRINGES (300MG) SUBCUTANEOUSLY EVERY 4 WEEK(S) AS DIRECTED
     Route: 058
     Dates: start: 20240328
  2. XOLAIR [Suspect]
     Active Substance: OMALIZUMAB
     Route: 058
     Dates: start: 201901
  3. KETAMINE [Suspect]
     Active Substance: KETAMINE
     Indication: Pain
     Route: 065

REACTIONS (8)
  - Spinal fracture [Unknown]
  - Memory impairment [Unknown]
  - Product dose omission in error [Unknown]
  - Urticaria [Not Recovered/Not Resolved]
  - Spinal cord compression [Unknown]
  - Hypersensitivity [Unknown]
  - Road traffic accident [Unknown]
  - Injection site swelling [Unknown]

NARRATIVE: CASE EVENT DATE: 20211031
